FAERS Safety Report 13134871 (Version 2)
Quarter: 2017Q1

REPORT INFORMATION
  Report Type: Spontaneous
  Country: US (occurrence: US)
  Receive Date: 20170120
  Receipt Date: 20170315
  Transmission Date: 20170428
  Serious: No
  Sender: FDA-Public Use
  Company Number: US-PFIZER INC-2017023510

PATIENT
  Age: 69 Year
  Sex: Female
  Weight: 93 kg

DRUGS (2)
  1. PROCARDIA [Suspect]
     Active Substance: NIFEDIPINE
     Dosage: 90 MG, DAILY (60MG IN MORINNG AND 30MG AT NIGHT)
  2. PROCARDIA [Suspect]
     Active Substance: NIFEDIPINE
     Indication: HYPERTENSION
     Dosage: 90 MG, 1X/DAY (IN THE MORNING)

REACTIONS (2)
  - Blood pressure inadequately controlled [Recovered/Resolved]
  - Drug dispensing error [Recovered/Resolved]
